FAERS Safety Report 7730380-0 (Version None)
Quarter: 2011Q3

REPORT INFORMATION
  Report Type: 
  Country: None (occurrence: None)
  Receive Date: 20110906
  Receipt Date: 20110901
  Transmission Date: 20111222
  Serious: Yes (Hospitalization, Disabling)
  Sender: FDA-Public Use
  Company Number: GB-TEVA-299146ISR

PATIENT
  Age: 76 Year
  Sex: Male
  Weight: 70 kg

DRUGS (2)
  1. RAMIPRIL [Suspect]
     Indication: HYPERTENSION
     Dosage: 2.5 MILLIGRAM;
     Route: 048
     Dates: start: 20110803
  2. IVABRADINE [Suspect]
     Indication: ANGINA PECTORIS
     Dosage: 10 MILLIGRAM;
     Route: 048
     Dates: start: 20100301, end: 20110817

REACTIONS (3)
  - LUNG DISORDER [None]
  - DYSPNOEA [None]
  - WEIGHT DECREASED [None]
